FAERS Safety Report 8100099-5 (Version None)
Quarter: 2012Q1

REPORT INFORMATION
  Report Type: 
  Country: None (occurrence: None)
  Receive Date: 20120129
  Receipt Date: 20111220
  Transmission Date: 20120608
  Serious: Yes (Hospitalization, Other)
  Sender: FDA-Public Use
  Company Number: US-ABBOTT-11P-163-0878859-00

PATIENT
  Sex: Female
  Weight: 84.444 kg

DRUGS (2)
  1. HUMIRA [Suspect]
     Dosage: 0.8ML (40MG) EVERY TWO WEEKS
     Route: 058
  2. HUMIRA [Suspect]
     Indication: CROHN'S DISEASE
     Route: 058
     Dates: start: 20111101, end: 20111101

REACTIONS (1)
  - CROHN'S DISEASE [None]
